FAERS Safety Report 10534527 (Version 1)
Quarter: 2014Q4

REPORT INFORMATION
  Report Type: Spontaneous
  Country: US (occurrence: US)
  Receive Date: 20141022
  Receipt Date: 20141022
  Transmission Date: 20150529
  Serious: No
  Sender: FDA-Public Use
  Company Number: US-TEVA-517287USA

PATIENT
  Age: 21 Year
  Sex: Female
  Weight: 72.64 kg

DRUGS (1)
  1. PARAGARD T380A [Suspect]
     Active Substance: COPPER
     Indication: CONTRACEPTION
     Route: 015
     Dates: start: 20141001, end: 20141017

REACTIONS (3)
  - Abdominal pain [Recovered/Resolved]
  - Device expulsion [Recovered/Resolved]
  - Dysfunctional uterine bleeding [Recovered/Resolved]

NARRATIVE: CASE EVENT DATE: 20141001
